FAERS Safety Report 8896483 (Version 1)
Quarter: 2012Q4

REPORT INFORMATION
  Report Type: Spontaneous
  Country: US (occurrence: None)
  Receive Date: 20121107
  Receipt Date: 20121107
  Transmission Date: 20130627
  Serious: Yes (Hospitalization, Disabling)
  Sender: FDA-Public Use
  Company Number: None

PATIENT
  Age: 30 Year
  Sex: Female
  Weight: 56.7 kg

DRUGS (1)
  1. AVELOX TABLET 400 MG [Suspect]
     Indication: BRONCHITIS
     Dosage: 1 pill per day po
     Route: 048
     Dates: start: 20051015, end: 20051015

REACTIONS (9)
  - Neuropathy peripheral [None]
  - Tremor [None]
  - Vertigo [None]
  - Balance disorder [None]
  - Arthralgia [None]
  - Tendon pain [None]
  - Food allergy [None]
  - Pain [None]
  - Multiple chemical sensitivity [None]
